FAERS Safety Report 4610387-2 (Version None)
Quarter: 2005Q1

REPORT INFORMATION
  Report Type: 
  Country: None (occurrence: None)
  Receive Date: 20050301
  Receipt Date: 20041229
  Transmission Date: 20050727
  Serious: No
  Sender: FDA-Public Use
  Company Number: WAES 0412USA03241

PATIENT
  Age: 69 Year
  Sex: Male

DRUGS (5)
  1. ZETIA [Suspect]
     Indication: BLOOD CHOLESTEROL INCREASED
     Dosage: 10 MG/DAILY/PO
     Route: 048
     Dates: end: 20041228
  2. DIOVAN [Concomitant]
  3. NORVASC [Concomitant]
  4. TENORMIN [Concomitant]
  5. INSULIN [Concomitant]

REACTIONS (1)
  - PRURITUS [None]
